FAERS Safety Report 7607155-6 (Version None)
Quarter: 2011Q3

REPORT INFORMATION
  Report Type: 
  Country: None (occurrence: None)
  Receive Date: 20110713
  Receipt Date: 20110630
  Transmission Date: 20111222
  Serious: Yes (Hospitalization)
  Sender: FDA-Public Use
  Company Number: JP-JNJFOC-20110701438

PATIENT
  Sex: Male

DRUGS (4)
  1. REMICADE [Suspect]
     Indication: CROHN'S DISEASE
     Route: 042
     Dates: start: 20060110
  2. IMURAN [Suspect]
     Indication: ILL-DEFINED DISORDER
     Route: 048
     Dates: start: 20060110, end: 20101030
  3. PENTASA [Suspect]
     Indication: ILL-DEFINED DISORDER
     Route: 048
     Dates: start: 20060110, end: 20110627
  4. REMICADE [Suspect]
     Route: 042
     Dates: start: 20110602

REACTIONS (1)
  - LYMPHOMA [None]
